FAERS Safety Report 6117777-X (Version None)
Quarter: 2009Q1

REPORT INFORMATION
  Report Type: 
  Country: None (occurrence: None)
  Receive Date: 20090314
  Receipt Date: 20090204
  Transmission Date: 20090719
  Serious: No
  Sender: FDA-Public Use
  Company Number: US-ABBOTT-09P-163-0500567-00

PATIENT
  Sex: Female
  Weight: 49.94 kg

DRUGS (2)
  1. HUMIRA [Suspect]
     Indication: PSORIASIS
     Dosage: NOT REPORTED
     Dates: start: 20050101, end: 20050101
  2. HUMIRA [Suspect]
     Dosage: NOT REPORTED
     Dates: start: 20080801, end: 20090101

REACTIONS (6)
  - ARTHRALGIA [None]
  - DEPRESSION [None]
  - HERPES ZOSTER [None]
  - NASOPHARYNGITIS [None]
  - PIGMENTATION DISORDER [None]
  - PSORIASIS [None]
